FAERS Safety Report 10069364 (Version 2)
Quarter: 2014Q2

REPORT INFORMATION
  Report Type: Spontaneous
  Country: US (occurrence: US)
  Receive Date: 20140410
  Receipt Date: 20140428
  Transmission Date: 20141212
  Serious: Yes (Hospitalization)
  Sender: FDA-Public Use
  Company Number: US-AMGEN INC.-USASP2014024865

PATIENT
  Age: 59 Year
  Sex: Female
  Weight: 90.61 kg

DRUGS (10)
  1. ENBREL [Suspect]
     Indication: PSORIASIS
     Dosage: 50 MG, QWK
     Route: 058
  2. ASPIRIN [Concomitant]
     Dosage: 325 MG, QD
     Route: 048
     Dates: start: 20120912
  3. CALCIUM 600 + D [Concomitant]
     Dosage: 1 TABLET 2 TIMES A DAY
     Route: 048
     Dates: start: 20130628
  4. CALCIUM CITRATE WITH VITAMIN D3 [Concomitant]
     Dosage: 1 DF, BID
     Route: 048
     Dates: start: 20140319
  5. CLOBETASOL [Concomitant]
     Dosage: UNK
     Route: 061
     Dates: start: 20120718
  6. HYDROXYZINE HCL [Concomitant]
     Dosage: 25 MG, BID
     Route: 048
     Dates: start: 20131007
  7. LISINOPRIL [Concomitant]
     Dosage: 30 MG, QD
     Route: 048
     Dates: start: 20140219
  8. METFORMIN [Concomitant]
     Dosage: 500 MG, QD
     Route: 048
     Dates: start: 20140319
  9. SIMVASTATIN [Concomitant]
     Dosage: 40 MG, QD
     Route: 048
     Dates: start: 20131111
  10. ZOCOR [Concomitant]
     Dosage: 40 MG, QD
     Route: 048
     Dates: start: 20140219

REACTIONS (7)
  - Transient ischaemic attack [Not Recovered/Not Resolved]
  - Blood cholesterol increased [Recovered/Resolved]
  - Diabetes mellitus [Not Recovered/Not Resolved]
  - Weight increased [Not Recovered/Not Resolved]
  - Vitamin D decreased [Not Recovered/Not Resolved]
  - Depressed mood [Not Recovered/Not Resolved]
  - Injection site bruising [Recovered/Resolved]
